FAERS Safety Report 16440182 (Version 2)
Quarter: 2019Q2

REPORT INFORMATION
  Report Type: Spontaneous
  Country: US (occurrence: US)
  Receive Date: 20190617
  Receipt Date: 20190618
  Transmission Date: 20190711
  Serious: Yes (Disabling, Other)
  Sender: FDA-Public Use
  Company Number: US-PFIZER INC-2019251476

PATIENT
  Sex: Female
  Weight: 81.63 kg

DRUGS (3)
  1. LISINOPRIL. [Concomitant]
     Active Substance: LISINOPRIL
     Indication: BLOOD PRESSURE ABNORMAL
     Dosage: UNK, 1X/DAY (TABLETS BY MOUTH ONCE DAILY)
     Route: 048
  2. EFFEXOR XR [Suspect]
     Active Substance: VENLAFAXINE HYDROCHLORIDE
     Indication: HORMONE THERAPY
  3. EFFEXOR XR [Suspect]
     Active Substance: VENLAFAXINE HYDROCHLORIDE
     Indication: DEPRESSION
     Dosage: 150 MG, 1X/DAY

REACTIONS (3)
  - Arthritis [Not Recovered/Not Resolved]
  - Anxiety [Not Recovered/Not Resolved]
  - Cataract [Recovered/Resolved]
